FAERS Safety Report 7430842-X (Version None)
Quarter: 2011Q2

REPORT INFORMATION
  Report Type: 
  Country: None (occurrence: None)
  Receive Date: 20110421
  Receipt Date: 20110325
  Transmission Date: 20111010
  Serious: No
  Sender: FDA-Public Use
  Company Number: US-BAYER-2011-027244

PATIENT
  Sex: Female

DRUGS (6)
  1. ALEVE (CAPLET) [Suspect]
     Indication: PRODUCT USED FOR UNKNOWN INDICATION
     Route: 048
  2. EXCEDRIN ASPIRIN FREE [Concomitant]
  3. ASPIRIN [Concomitant]
     Route: 048
  4. MOTRIN [Concomitant]
     Route: 048
  5. ADVIL LIQUI-GELS [Concomitant]
     Route: 048
  6. TYLENOL 1 [Concomitant]
     Route: 048

REACTIONS (1)
  - ULCER [None]
